FAERS Safety Report 20462598 (Version 1)
Quarter: 2022Q1

REPORT INFORMATION
  Report Type: Spontaneous
  Country: None (occurrence: US)
  Receive Date: 20220211
  Receipt Date: 20220211
  Transmission Date: 20220423
  Serious: Yes (Hospitalization, Other)
  Sender: FDA-Public Use
  Company Number: US-Sunstar Americas Inc.-2125809

PATIENT
  Sex: Male
  Weight: 128.2 kg

DRUGS (14)
  1. PAROEX [Suspect]
     Active Substance: CHLORHEXIDINE GLUCONATE
     Indication: Pharyngitis
     Route: 002
     Dates: start: 20201006, end: 20201008
  2. DIPRIVAN [Concomitant]
     Active Substance: PROPOFOL
     Route: 042
     Dates: start: 20201006, end: 20201007
  3. SENNA LIQUID [Concomitant]
     Active Substance: SENNOSIDES
     Route: 002
     Dates: start: 20201006, end: 20201008
  4. SODIUM BICARBONATE [Concomitant]
     Active Substance: SODIUM BICARBONATE
     Route: 042
     Dates: start: 20201006, end: 20201006
  5. MAGNESIUM SULFATE IN WATER [Concomitant]
     Active Substance: MAGNESIUM SULFATE HEPTAHYDRATE
     Route: 042
     Dates: start: 20201006, end: 20201006
  6. PANTOPRAZOLE SODIUM [Concomitant]
     Active Substance: PANTOPRAZOLE SODIUM
     Route: 002
     Dates: start: 20201007, end: 20201008
  7. DOCUSATE SODIUM [Concomitant]
     Active Substance: DOCUSATE SODIUM
     Route: 002
     Dates: start: 20201006, end: 20201008
  8. DEXTROSE MONOHYDRATE [Concomitant]
     Active Substance: DEXTROSE MONOHYDRATE
     Route: 042
     Dates: start: 20201008, end: 20201008
  9. ACETAMINOPHEN [Concomitant]
     Active Substance: ACETAMINOPHEN
     Route: 054
     Dates: start: 20201006, end: 20201006
  10. AMIODARONE HYDROCHLORIDE [Concomitant]
     Active Substance: AMIODARONE HYDROCHLORIDE
     Route: 042
     Dates: start: 20201006, end: 20201006
  11. CALCIUM GLUCONATE [Concomitant]
     Active Substance: CALCIUM GLUCONATE
     Route: 042
     Dates: start: 20201006, end: 20201006
  12. CALCIUM CHLORIDE [Concomitant]
     Active Substance: CALCIUM CHLORIDE
     Route: 042
     Dates: start: 20201006, end: 20201006
  13. PRECEDEX [Concomitant]
     Active Substance: DEXMEDETOMIDINE HYDROCHLORIDE
     Route: 042
     Dates: start: 20201007, end: 20201007
  14. SODIUM CHLORIDE [Concomitant]
     Active Substance: SODIUM CHLORIDE
     Route: 040
     Dates: start: 20201006, end: 20201006

REACTIONS (7)
  - Generalised oedema [Unknown]
  - Hypotension [Unknown]
  - Respiratory depression [Unknown]
  - Dyspnoea [Unknown]
  - Cardiac arrest [Unknown]
  - Burkholderia test positive [Unknown]
  - Endotracheal intubation [Unknown]

NARRATIVE: CASE EVENT DATE: 20201006
